FAERS Safety Report 4691874-8 (Version None)
Quarter: 2005Q2

REPORT INFORMATION
  Report Type: 
  Country: None (occurrence: None)
  Receive Date: 20050615
  Receipt Date: 20050615
  Transmission Date: 20051028
  Serious: Yes (Death)
  Sender: FDA-Public Use
  Company Number: None

PATIENT
  Sex: Male
  Weight: 91.2 kg

DRUGS (2)
  1. CYTARABINE [Suspect]
     Indication: ACUTE MYELOID LEUKAEMIA
     Dosage: 100 MG/M2/DAY BY CIV ON DAYS 1-7
     Route: 042
     Dates: start: 20050603
  2. DAUNORUBICIN [Suspect]
     Dosage: 60 MG/M2/DAY BY IVP ON DAYS 1-3

REACTIONS (4)
  - BLOOD PRESSURE DECREASED [None]
  - OXYGEN SATURATION DECREASED [None]
  - PNEUMONIA ASPIRATION [None]
  - RESPIRATORY FAILURE [None]
